FAERS Safety Report 21400233 (Version 1)
Quarter: 2022Q3

REPORT INFORMATION
  Report Type: Spontaneous
  Country: US (occurrence: None)
  Receive Date: 20220929
  Receipt Date: 20220929
  Transmission Date: 20221027
  Serious: No
  Sender: FDA-Public Use
  Company Number: None

PATIENT
  Sex: Female

DRUGS (6)
  1. GLEOSTINE [Suspect]
     Active Substance: LOMUSTINE
     Indication: Malignant central nervous system neoplasm
     Route: 048
     Dates: start: 20220203, end: 202209
  2. BACTRIM DS [Concomitant]
     Active Substance: SULFAMETHOXAZOLE\TRIMETHOPRIM
  3. KEPPRA [Concomitant]
     Active Substance: LEVETIRACETAM
  4. MULTIVITAMIN [Concomitant]
  5. PRESERVISION CAP AREDS 2 [Concomitant]
  6. ZOFRAN [Concomitant]

REACTIONS (1)
  - Death [None]
